FAERS Safety Report 15859860 (Version 1)
Quarter: 2019Q1

REPORT INFORMATION
  Report Type: Spontaneous
  Country: DK (occurrence: DK)
  Receive Date: 20190123
  Receipt Date: 20190123
  Transmission Date: 20190417
  Serious: Yes (Other)
  Sender: FDA-Public Use
  Company Number: PHHY2018DK200788

PATIENT
  Age: 68 Year
  Sex: Female

DRUGS (13)
  1. CIPROFLOXACIN. [Suspect]
     Active Substance: CIPROFLOXACIN
     Indication: PRODUCT USED FOR UNKNOWN INDICATION
     Dosage: UNK
     Route: 065
     Dates: start: 20160328
  2. CIPROFLOXACIN. [Suspect]
     Active Substance: CIPROFLOXACIN
     Dosage: 250 MG, BID
     Route: 065
     Dates: start: 20160403
  3. AMPICILLIN [Suspect]
     Active Substance: AMPICILLIN
     Dosage: UNK
     Route: 065
     Dates: start: 20160401
  4. PREDNISOLONE. [Suspect]
     Active Substance: PREDNISOLONE
     Dosage: 10 MG, QD
     Route: 065
     Dates: start: 20160518
  5. AMPICILLIN [Suspect]
     Active Substance: AMPICILLIN
     Indication: PRODUCT USED FOR UNKNOWN INDICATION
     Dosage: UNK
     Route: 065
     Dates: end: 20160328
  6. TAZOCIN [Suspect]
     Active Substance: PIPERACILLIN SODIUM\TAZOBACTAM SODIUM
     Dosage: UNK UNK, BID
     Route: 065
     Dates: end: 20160405
  7. PREDNISOLONE. [Suspect]
     Active Substance: PREDNISOLONE
     Indication: TUBULOINTERSTITIAL NEPHRITIS
     Dosage: UNK (HIGH DOSES)
     Route: 065
     Dates: start: 20160413
  8. HEXAMYCIN [Suspect]
     Active Substance: GENTAMICIN
     Dosage: UNK
     Route: 065
     Dates: start: 20160401
  9. DICILLIN [Suspect]
     Active Substance: DICLOXACILLIN SODIUM
     Indication: SKELETAL INJURY
     Dosage: UNK
     Route: 065
     Dates: start: 20160327, end: 20160328
  10. HEXAMYCIN [Suspect]
     Active Substance: GENTAMICIN
     Indication: PRODUCT USED FOR UNKNOWN INDICATION
     Dosage: UNK
     Route: 065
     Dates: end: 20160328
  11. PREDNISOLONE. [Suspect]
     Active Substance: PREDNISOLONE
     Dosage: 7.5 MG, QD
     Route: 065
     Dates: start: 20160608, end: 20161207
  12. VANCOMYCIN [Suspect]
     Active Substance: VANCOMYCIN
     Indication: PRODUCT USED FOR UNKNOWN INDICATION
     Dosage: UNK
     Route: 065
  13. TAZOCIN [Suspect]
     Active Substance: PIPERACILLIN SODIUM\TAZOBACTAM SODIUM
     Indication: PRODUCT USED FOR UNKNOWN INDICATION
     Dosage: UNK
     Route: 065

REACTIONS (3)
  - Tubulointerstitial nephritis [Recovering/Resolving]
  - Acute kidney injury [Unknown]
  - Pyelonephritis [Unknown]

NARRATIVE: CASE EVENT DATE: 20160329
